FAERS Safety Report 13489038 (Version 1)
Quarter: 2017Q2

REPORT INFORMATION
  Report Type: Spontaneous
  Country: US (occurrence: US)
  Receive Date: 20170426
  Receipt Date: 20170426
  Transmission Date: 20170830
  Serious: No
  Sender: FDA-Public Use
  Company Number: US-MAYNE PHARMA-2015MYN000322

PATIENT
  Sex: Female
  Weight: 50.85 kg

DRUGS (1)
  1. CARBIDOPA/LEVODOPA [Suspect]
     Active Substance: CARBIDOPA\LEVODOPA
     Indication: PARKINSON^S DISEASE
     Dosage: 25MG/100MG
     Route: 065

REACTIONS (2)
  - Hypermagnesaemia [Unknown]
  - Arrhythmia [Unknown]

NARRATIVE: CASE EVENT DATE: 2015
